FAERS Safety Report 8250049-6 (Version None)
Quarter: 2012Q2

REPORT INFORMATION
  Report Type: 
  Country: None (occurrence: None)
  Receive Date: 20120402
  Receipt Date: 20120323
  Transmission Date: 20120825
  Serious: Yes (Hospitalization)
  Sender: FDA-Public Use
  Company Number: FR-ASTRAZENECA-2012SE10955

PATIENT
  Age: 62 Year
  Sex: Female
  Weight: 56 kg

DRUGS (3)
  1. TERCIAN [Concomitant]
  2. DEPAKENE [Suspect]
     Indication: AFFECTIVE DISORDER
  3. QUETIAPINE FUMARATE [Suspect]
     Indication: MAJOR DEPRESSION
     Route: 048
     Dates: start: 20111229

REACTIONS (4)
  - CONFUSIONAL STATE [None]
  - THROMBOCYTOPENIA [None]
  - LEUKOPENIA [None]
  - LYMPHOPENIA [None]
